FAERS Safety Report 23911471 (Version 2)
Quarter: 2025Q3

REPORT INFORMATION
  Report Type: Spontaneous
  Country: US (occurrence: US)
  Receive Date: 20240528
  Receipt Date: 20250724
  Transmission Date: 20251020
  Serious: No
  Sender: SANOFI AVENTIS
  Company Number: US-SA-2024SA155079

PATIENT
  Sex: Male
  Weight: 105 kg

DRUGS (10)
  1. FABRAZYME [Suspect]
     Active Substance: AGALSIDASE BETA
     Indication: Fabry^s disease
     Dosage: 100 MG, QOW
     Route: 042
     Dates: start: 20130316
  2. STERILE WATER [Concomitant]
     Active Substance: WATER
  3. SODIUM CHLORIDE [Concomitant]
     Active Substance: SODIUM CHLORIDE
  4. EPINEPHRINE [Concomitant]
     Active Substance: EPINEPHRINE
  5. VITAMINS NOS [Concomitant]
     Active Substance: VITAMINS
  6. SODIUM CHLORIDE [Concomitant]
     Active Substance: SODIUM CHLORIDE
  7. NAPROXEN [Concomitant]
     Active Substance: NAPROXEN
  8. GLUCOSAMINE [Concomitant]
     Active Substance: GLUCOSAMINE
  9. CYCLOBENZAPRINE HYDROCHLORIDE [Concomitant]
     Active Substance: CYCLOBENZAPRINE HYDROCHLORIDE
  10. ENTRESTO [Concomitant]
     Active Substance: SACUBITRIL\VALSARTAN

REACTIONS (1)
  - Carpal tunnel syndrome [Unknown]
